FAERS Safety Report 25997420 (Version 1)
Quarter: 2025Q4

REPORT INFORMATION
  Report Type: Spontaneous
  Country: JP (occurrence: JP)
  Receive Date: 20251104
  Receipt Date: 20251104
  Transmission Date: 20260119
  Serious: Yes (Other)
  Sender: MERCK SHARP & DOHME LLC
  Company Number: JP-009507513-2345694

PATIENT
  Age: 7 Decade
  Sex: Male

DRUGS (3)
  1. KEYTRUDA [Suspect]
     Active Substance: PEMBROLIZUMAB
     Indication: Non-small cell lung cancer stage III
     Route: 041
  2. CISPLATIN [Concomitant]
     Active Substance: CISPLATIN
     Route: 065
  3. PEMETREXED [Concomitant]
     Active Substance: PEMETREXED
     Route: 065

REACTIONS (1)
  - Infectious pleural effusion [Recovered/Resolved]
